FAERS Safety Report 4996271-3 (Version None)
Quarter: 2006Q2

REPORT INFORMATION
  Report Type: 
  Country: None (occurrence: None)
  Receive Date: 20060505
  Receipt Date: 20060426
  Transmission Date: 20061013
  Serious: Yes (Other)
  Sender: FDA-Public Use
  Company Number: 2006-03-0137

PATIENT
  Age: 58 Year
  Sex: Female

DRUGS (3)
  1. REBETOL [Suspect]
     Indication: HEPATITIS C
     Dosage: 600 MG ORAL
     Dates: start: 20050711, end: 20051224
  2. INTRON A [Suspect]
     Indication: HEPATITIS C
     Dosage: 6 MIU QD-TIW INTRAMUSCULAR
     Route: 030
     Dates: start: 20050711, end: 20050726
  3. INTRON A [Suspect]
     Indication: HEPATITIS C
     Dosage: 6 MIU QD-TIW INTRAMUSCULAR
     Route: 030
     Dates: start: 20050727, end: 20051224

REACTIONS (7)
  - DIABETES MELLITUS [None]
  - GASTRIC ULCER [None]
  - GASTRITIS [None]
  - GLOMERULONEPHRITIS CHRONIC [None]
  - HYPERTHYROIDISM [None]
  - HYPOTHYROIDISM [None]
  - INSOMNIA [None]
